FAERS Safety Report 7949341-1 (Version None)
Quarter: 2011Q4

REPORT INFORMATION
  Report Type: 
  Country: None (occurrence: None)
  Receive Date: 20111130
  Receipt Date: 20111124
  Transmission Date: 20120403
  Serious: Yes (Hospitalization)
  Sender: FDA-Public Use
  Company Number: JP-ABBOTT-11P-087-0708633-00

PATIENT
  Sex: Male
  Weight: 58 kg

DRUGS (15)
  1. HUMIRA [Suspect]
     Dates: start: 20110222, end: 20110222
  2. HUMIRA [Suspect]
     Dates: start: 20110208, end: 20110208
  3. ENTERAL NUTRITION [Concomitant]
     Indication: CROHN'S DISEASE
     Route: 048
  4. HUMIRA [Suspect]
     Indication: CROHN'S DISEASE
     Route: 058
     Dates: start: 20110309
  5. LANSOPRAZOLE [Concomitant]
     Indication: GASTRITIS PROPHYLAXIS
     Route: 048
  6. MECOBALAMIN [Concomitant]
     Indication: PERONEAL NERVE PALSY
  7. SCOPOLAMINE BUTYLBROMIDE [Concomitant]
     Indication: ABDOMINAL PAIN
  8. CLOSTRIDIUM BUTYRICUM [Concomitant]
     Indication: PROPHYLAXIS AGAINST DIARRHOEA
     Route: 048
  9. ALENDRONATE SODIUM [Concomitant]
     Indication: ADVERSE DRUG REACTION
  10. FERROUS CITRATE [Concomitant]
     Indication: ANAEMIA
     Route: 048
  11. LANSOPRAZOLE [Concomitant]
  12. MESALAMINE [Concomitant]
     Indication: CROHN'S DISEASE
     Dosage: 3000 MG DAILY
  13. ALENDRONATE SODIUM [Concomitant]
     Indication: PROPHYLAXIS
     Route: 048
  14. SULFAMETHOXAZOLE AND TRIMETHOPRIM [Concomitant]
     Indication: INFECTION PROPHYLAXIS
     Route: 048
  15. SCOPOLAMINE BUTYLBROMIDE [Concomitant]
     Indication: PROPHYLAXIS
     Route: 048

REACTIONS (3)
  - RASH [None]
  - BODY TEMPERATURE INCREASED [None]
  - PYREXIA [None]
